FAERS Safety Report 18962558 (Version 2)
Quarter: 2021Q2

REPORT INFORMATION
  Report Type: Spontaneous
  Country: GB (occurrence: GB)
  Receive Date: 20210303
  Receipt Date: 20210416
  Transmission Date: 20210717
  Serious: Yes (Other)
  Sender: FDA-Public Use
  Company Number: GB-SHILPA MEDICARE LIMITED-SML-GB-2021-00237

PATIENT
  Age: 69 Year
  Sex: Male

DRUGS (1)
  1. IMATINIB, UNKNOWN [Suspect]
     Active Substance: IMATINIB
     Indication: ACUTE LYMPHOCYTIC LEUKAEMIA
     Route: 065

REACTIONS (4)
  - Rash [Unknown]
  - Drug hypersensitivity [Unknown]
  - Swelling [Unknown]
  - Acute lymphocytic leukaemia recurrent [Unknown]

NARRATIVE: CASE EVENT DATE: 20200306
